FAERS Safety Report 9144370 (Version 1)
Quarter: 2013Q1

REPORT INFORMATION
  Report Type: Spontaneous
  Country: DK (occurrence: FR)
  Receive Date: 20130306
  Receipt Date: 20130306
  Transmission Date: 20140127
  Serious: Yes (Hospitalization)
  Sender: FDA-Public Use
  Company Number: FR-FRI-1000043173

PATIENT
  Age: 84 Year
  Sex: Female

DRUGS (6)
  1. ESCITALOPRAM [Suspect]
     Dosage: 10 MG
     Route: 048
     Dates: end: 20121003
  2. MICARDIPLUS [Concomitant]
  3. MODOPAR [Concomitant]
  4. SPIRIVA [Concomitant]
  5. GLICLAZIDE [Concomitant]
  6. DETRUSITOL [Concomitant]

REACTIONS (1)
  - Hepatitis cholestatic [Recovered/Resolved]
